FAERS Safety Report 5105809-7 (Version None)
Quarter: 2006Q3

REPORT INFORMATION
  Report Type: 
  Country: None (occurrence: None)
  Receive Date: 20060915
  Receipt Date: 20060905
  Transmission Date: 20061208
  Serious: Yes (Death, Hospitalization)
  Sender: FDA-Public Use
  Company Number: US-JNJFOC-20060902144

PATIENT
  Sex: Male

DRUGS (4)
  1. ACETAMINOPHEN [Suspect]
     Route: 048
  2. ACETAMINOPHEN [Suspect]
     Indication: DRUG ABUSER
     Route: 048
  3. ISOPROPYL ALCOHOL COMPOUND LIQUID [Suspect]
     Indication: DRUG ABUSER
     Route: 048
  4. ETHANOL [Suspect]
     Indication: DRUG ABUSER
     Route: 048

REACTIONS (9)
  - ACIDOSIS [None]
  - ALANINE AMINOTRANSFERASE INCREASED [None]
  - ASPARTATE AMINOTRANSFERASE INCREASED [None]
  - BLOOD BILIRUBIN INCREASED [None]
  - BLOOD KETONE BODY INCREASED [None]
  - CONFUSIONAL STATE [None]
  - INTERNATIONAL NORMALISED RATIO INCREASED [None]
  - MULTI-ORGAN FAILURE [None]
  - SUBSTANCE ABUSE [None]
